FAERS Safety Report 8446073-0 (Version None)
Quarter: 2012Q2

REPORT INFORMATION
  Report Type: 
  Country: None (occurrence: None)
  Receive Date: 20120618
  Receipt Date: 20120613
  Transmission Date: 20120825
  Serious: Yes (Death, Hospitalization)
  Sender: FDA-Public Use
  Company Number: US-CELGENEUS-163-21880-12042176

PATIENT
  Sex: Male
  Weight: 83.99 kg

DRUGS (16)
  1. METOPROLOL SUCCINATE [Concomitant]
     Dosage: 50/75
     Route: 048
     Dates: start: 20120201
  2. REVLIMID [Suspect]
     Indication: B-CELL LYMPHOMA
     Dosage: 20 MILLIGRAM
     Route: 048
     Dates: start: 20120323, end: 20120401
  3. REVLIMID [Suspect]
     Dosage: 15 MILLIGRAM
     Route: 048
     Dates: start: 20120401, end: 20120501
  4. PREVACID [Concomitant]
     Dosage: 30 MILLIGRAM
     Route: 048
     Dates: start: 20110101
  5. ULTRAM [Concomitant]
     Dosage: 50 MILLIGRAM
     Route: 048
     Dates: start: 20110101
  6. M.V.I. [Concomitant]
     Dosage: 1
     Route: 048
     Dates: start: 20120301
  7. MAGNESIUM [Concomitant]
     Dosage: 500 MILLIGRAM
     Route: 048
     Dates: start: 20120201
  8. ONDANSETRON [Concomitant]
     Dosage: 8 MILLIGRAM
     Route: 048
     Dates: start: 20120101
  9. FE [Concomitant]
     Dosage: 1
     Route: 048
     Dates: start: 20120301
  10. NEURONTIN [Concomitant]
     Dosage: 300/600MG
     Route: 048
     Dates: start: 20110101
  11. ASPIRIN [Concomitant]
     Dosage: 81 MILLIGRAM
     Route: 048
     Dates: start: 20120301
  12. AMIODARONE HYDROCHLORIDE [Concomitant]
     Dosage: 100 MILLIGRAM
     Route: 048
     Dates: start: 20120401
  13. ZOCOR [Concomitant]
     Route: 065
  14. VALTREX [Concomitant]
     Dosage: 500 MILLIGRAM
     Route: 048
     Dates: start: 20110101
  15. DILAUDID [Concomitant]
     Dosage: 2 MILLIGRAM
     Route: 048
     Dates: start: 20110101
  16. STOOL SOFTENER [Concomitant]
     Dosage: 1 DOSAGE FORMS
     Route: 048

REACTIONS (5)
  - B-CELL LYMPHOMA [None]
  - DEATH [None]
  - PNEUMONIA [None]
  - FULL BLOOD COUNT DECREASED [None]
  - NEUTROPHIL COUNT DECREASED [None]
